FAERS Safety Report 23995116 (Version 1)
Quarter: 2024Q2

REPORT INFORMATION
  Report Type: Spontaneous
  Country: ES (occurrence: ES)
  Receive Date: 20240620
  Receipt Date: 20240620
  Transmission Date: 20240715
  Serious: Yes (Death, Other)
  Sender: FDA-Public Use
  Company Number: ES-ELI_LILLY_AND_COMPANY-ES202406010030

PATIENT
  Age: 60 Year
  Sex: Female

DRUGS (1)
  1. BARICITINIB [Suspect]
     Active Substance: BARICITINIB
     Indication: Rheumatoid arthritis
     Dosage: 4 MG, UNKNOWN
     Route: 065
     Dates: start: 20190410

REACTIONS (3)
  - Death [Fatal]
  - Gastric neoplasm [Unknown]
  - Metastases to liver [Unknown]
